FAERS Safety Report 8496502-1 (Version None)
Quarter: 2012Q2

REPORT INFORMATION
  Report Type: 
  Country: None (occurrence: None)
  Receive Date: 20120629
  Receipt Date: 20120626
  Transmission Date: 20120825
  Serious: Yes (Hospitalization)
  Sender: FDA-Public Use
  Company Number: GB-DEXPHARM-20110743

PATIENT
  Age: 61 Year
  Sex: Male

DRUGS (2)
  1. DIPYRIDAMOLE [Concomitant]
  2. OMEPRAZOLE [Suspect]
     Indication: PRODUCT USED FOR UNKNOWN INDICATION

REACTIONS (10)
  - LIVER INJURY [None]
  - VOMITING [None]
  - LIVEDO RETICULARIS [None]
  - SCAR [None]
  - HEADACHE [None]
  - MONOCYTOSIS [None]
  - CEREBROVASCULAR ACCIDENT [None]
  - HEPATITIS E [None]
  - THERAPY CESSATION [None]
  - DRUG INEFFECTIVE [None]
